FAERS Safety Report 4970131-6 (Version None)
Quarter: 2006Q2

REPORT INFORMATION
  Report Type: 
  Country: None (occurrence: None)
  Receive Date: 20060406
  Receipt Date: 20060327
  Transmission Date: 20061013
  Serious: Yes (Other)
  Sender: FDA-Public Use
  Company Number: 2003111489

PATIENT
  Age: 49 Year
  Sex: Male
  Weight: 104.3273 kg

DRUGS (4)
  1. LIPITOR [Suspect]
     Indication: BLOOD CHOLESTEROL INCREASED
     Dosage: 5 MG (1 IN 1 D), ORAL
     Route: 048
     Dates: start: 20030601
  2. NIASPAN [Suspect]
     Indication: ILL-DEFINED DISORDER
     Dates: start: 20050401, end: 20050601
  3. ALL OTHER THERAPEUTIC PRODUCTS (ALL OTHER THERAPEUTIC PRODUCTS) [Concomitant]
  4. EPIPEN (EPINEPHRINE) [Concomitant]

REACTIONS (5)
  - DRUG INTERACTION [None]
  - FOOD ALLERGY [None]
  - HIGH DENSITY LIPOPROTEIN DECREASED [None]
  - LIVER FUNCTION TEST ABNORMAL [None]
  - WEIGHT DECREASED [None]
